FAERS Safety Report 25543498 (Version 1)
Quarter: 2025Q3

REPORT INFORMATION
  Report Type: Spontaneous
  Country: US (occurrence: None)
  Receive Date: 20250710
  Receipt Date: 20250710
  Transmission Date: 20251021
  Serious: Yes (Other)
  Sender: FDA-CTU
  Company Number: None

PATIENT
  Age: 64 Year
  Sex: Female

DRUGS (1)
  1. ENBREL [Suspect]
     Active Substance: ETANERCEPT
     Dosage: 50MG EVERY WEEK

REACTIONS (5)
  - Arthralgia [None]
  - Fall [None]
  - Jaw fracture [None]
  - Cervical vertebral fracture [None]
  - Loss of personal independence in daily activities [None]
